FAERS Safety Report 8150374-3 (Version None)
Quarter: 2012Q1

REPORT INFORMATION
  Report Type: 
  Country: None (occurrence: None)
  Receive Date: 20120220
  Receipt Date: 20120215
  Transmission Date: 20120608
  Serious: Yes (Other)
  Sender: FDA-Public Use
  Company Number: US-PFIZER INC-2012042252

PATIENT
  Sex: Female

DRUGS (1)
  1. CHANTIX [Suspect]
     Dosage: UNK
     Dates: start: 20090501

REACTIONS (4)
  - MENTAL STATUS CHANGES [None]
  - AGGRESSION [None]
  - IRRITABILITY [None]
  - CONFUSIONAL STATE [None]
